FAERS Safety Report 8248657-1 (Version None)
Quarter: 2012Q1

REPORT INFORMATION
  Report Type: 
  Country: None (occurrence: None)
  Receive Date: 20120331
  Receipt Date: 20120326
  Transmission Date: 20120608
  Serious: Yes (Hospitalization, Other)
  Sender: FDA-Public Use
  Company Number: TR-ACCORD-012878

PATIENT
  Age: 43 Year
  Sex: Female

DRUGS (1)
  1. TOPIRAMATE [Suspect]
     Indication: MIGRAINE PROPHYLAXIS
     Dosage: PATIENT STARTED WITH TOPIRAMATE 25MG WHICH WAS INCREASED TO 100MG/DAY

REACTIONS (3)
  - COUGH [None]
  - SEDATION [None]
  - OFF LABEL USE [None]
